FAERS Safety Report 8445466-5 (Version None)
Quarter: 2012Q2

REPORT INFORMATION
  Report Type: 
  Country: None (occurrence: None)
  Receive Date: 20120618
  Receipt Date: 20120213
  Transmission Date: 20120825
  Serious: No
  Sender: FDA-Public Use
  Company Number: US-TEVA-322509USA

PATIENT
  Sex: Female

DRUGS (1)
  1. FENTORA [Suspect]

REACTIONS (2)
  - STOMATITIS [None]
  - TOOTH EROSION [None]
